FAERS Safety Report 9531645 (Version 1)
Quarter: 2013Q3

REPORT INFORMATION
  Report Type: Report from Study
  Country: US (occurrence: US)
  Receive Date: 20130918
  Receipt Date: 20130918
  Transmission Date: 20140515
  Serious: Yes (Other)
  Sender: FDA-Public Use
  Company Number: US-TEVA-432012USA

PATIENT
  Age: 49 Year
  Sex: Female
  Weight: 77.18 kg

DRUGS (7)
  1. NITROFURANTOIN [Suspect]
     Indication: URINARY TRACT INFECTION
     Dates: start: 201308
  2. AMPYRA (DALFAMPRIDINE) [Suspect]
     Indication: GAIT DISTURBANCE
     Dosage: 20 MILLIGRAM DAILY;
     Route: 048
     Dates: start: 201307
  3. BACLOFEN [Concomitant]
  4. PROVIGIL [Concomitant]
  5. ENABLEX [Concomitant]
  6. ESTROVEN [Concomitant]
  7. VITAMIN C [Concomitant]

REACTIONS (1)
  - Multiple sclerosis relapse [Not Recovered/Not Resolved]
